FAERS Safety Report 25544092 (Version 1)
Quarter: 2025Q3

REPORT INFORMATION
  Report Type: Spontaneous
  Country: US (occurrence: US)
  Receive Date: 20250711
  Receipt Date: 20250711
  Transmission Date: 20251021
  Serious: No
  Sender: BIONPHARMA INC.
  Company Number: US-Bion-015060

PATIENT
  Sex: Male

DRUGS (1)
  1. IBUPROFEN [Suspect]
     Active Substance: IBUPROFEN
     Indication: Pain
     Route: 048
     Dates: start: 20250705

REACTIONS (3)
  - Poor quality product administered [Unknown]
  - Product odour abnormal [Unknown]
  - No adverse event [Unknown]

NARRATIVE: CASE EVENT DATE: 20250705
